FAERS Safety Report 8774087 (Version 1)
Quarter: 2012Q4

REPORT INFORMATION
  Report Type: 
  Country: CA (occurrence: CA)
  Receive Date: 20120908
  Receipt Date: 20120908
  Transmission Date: 20130627
  Serious: Yes (Hospitalization, Other)
  Sender: FDA-Public Use
  Company Number: CA-ABBOTT-12P-028-0976204-00

PATIENT
  Age: 15 Year
  Sex: Male
  Weight: 62.6 kg

DRUGS (9)
  1. SEVOFLURANE [Suspect]
     Indication: MAINTENANCE OF ANAESTHESIA
  2. ACETAMINOPHEN [Suspect]
     Indication: PAIN
     Route: 048
  3. PROPOFOL [Suspect]
     Indication: INDUCTION OF ANAESTHESIA
  4. PROPOFOL [Suspect]
     Indication: MAINTENANCE OF ANAESTHESIA
  5. THIOPENTAL SODIUM [Concomitant]
     Indication: ANAESTHESIA
  6. FENTANYL [Concomitant]
     Indication: ANAESTHESIA
  7. HYDROMORPHONE [Concomitant]
     Indication: PAIN
  8. KETAMINE [Concomitant]
     Indication: PAIN
     Route: 042
  9. REMIFENTANIL [Concomitant]
     Indication: MAINTENANCE OF ANAESTHESIA

REACTIONS (4)
  - Catabolic state [Recovered/Resolved]
  - Reye^s syndrome [Recovered/Resolved]
  - Acute hepatic failure [Recovered/Resolved]
  - Metabolic disorder [Recovered/Resolved]
